FAERS Safety Report 10235336 (Version 1)
Quarter: 2014Q2

REPORT INFORMATION
  Report Type: Spontaneous
  Country: CA (occurrence: None)
  Receive Date: 20140612
  Receipt Date: 20140612
  Transmission Date: 20141212
  Serious: Yes (Hospitalization, Other)
  Sender: FDA-Public Use
  Company Number: None

PATIENT
  Age: 34 Year
  Sex: Female
  Weight: 70.31 kg

DRUGS (1)
  1. COPAXONE [Suspect]
     Indication: MULTIPLE SCLEROSIS
     Dosage: INJECT 20MG SUBCUTANEOUSLY ?ONCE DAILY?GIVEN INTO /UNDER THE SKIN
     Route: 058

REACTIONS (11)
  - Injection site rash [None]
  - Injection site pain [None]
  - Injection site discomfort [None]
  - Injection site warmth [None]
  - Infection [None]
  - Insomnia [None]
  - Gait disturbance [None]
  - Local swelling [None]
  - Scab [None]
  - Pruritus [None]
  - Impaired healing [None]
